FAERS Safety Report 12202272 (Version 3)
Quarter: 2017Q2

REPORT INFORMATION
  Report Type: Report from Study
  Country: US (occurrence: US)
  Receive Date: 20160323
  Receipt Date: 20170428
  Transmission Date: 20170830
  Serious: Yes (Hospitalization, Other)
  Sender: FDA-Public Use
  Company Number: US-AMGEN-USASL2016033018

PATIENT
  Age: 68 Year
  Sex: Female

DRUGS (11)
  1. EXALGO [Concomitant]
     Active Substance: HYDROMORPHONE HYDROCHLORIDE
     Indication: FIBROMYALGIA
     Dosage: UNK, BID
  2. VITAMIN D [Concomitant]
     Active Substance: CHOLECALCIFEROL
     Dosage: UNK
  3. CELEBREX [Concomitant]
     Active Substance: CELECOXIB
     Dosage: UNK
  4. EXALGO [Concomitant]
     Active Substance: HYDROMORPHONE HYDROCHLORIDE
     Dosage: UNK, QD
  5. VITAMIN E [Concomitant]
     Active Substance: .ALPHA.-TOCOPHEROL
     Indication: MUSCLE SPASMS
     Dosage: UNK
     Route: 065
  6. VITAMIN C [Concomitant]
     Active Substance: ASCORBIC ACID
     Dosage: UNK
  7. COSENTYX [Suspect]
     Active Substance: SECUKINUMAB
     Indication: PSORIATIC ARTHROPATHY
     Dosage: 150 MG, UNK
     Route: 065
     Dates: start: 2017
  8. ZINC. [Concomitant]
     Active Substance: ZINC
     Dosage: UNK
  9. ENBREL [Suspect]
     Active Substance: ETANERCEPT
     Indication: PSORIATIC ARTHROPATHY
     Dosage: 25 MG, 2 TIMES/WK
     Route: 065
     Dates: start: 2004
  10. ENBREL [Suspect]
     Active Substance: ETANERCEPT
     Indication: PSORIASIS
     Dosage: 25 MG, 2 TIMES/WK
     Route: 065
     Dates: end: 201703
  11. IBUPROFEN. [Concomitant]
     Active Substance: IBUPROFEN
     Dosage: UNK

REACTIONS (15)
  - Endometrial cancer [Unknown]
  - Lymphadenectomy [Unknown]
  - Surgery [Unknown]
  - Psoriasis [Not Recovered/Not Resolved]
  - Injection site swelling [Unknown]
  - Device issue [Unknown]
  - Quality of life decreased [Unknown]
  - Injection site warmth [Unknown]
  - Oophorectomy [Unknown]
  - Injection site erythema [Unknown]
  - Injection site pruritus [Unknown]
  - Autoimmune disorder [Unknown]
  - Psoriatic arthropathy [Not Recovered/Not Resolved]
  - Injection site pain [Unknown]
  - Injection site induration [Unknown]

NARRATIVE: CASE EVENT DATE: 2005
